FAERS Safety Report 8575419-8 (Version None)
Quarter: 2012Q3

REPORT INFORMATION
  Report Type: 
  Country: None (occurrence: None)
  Receive Date: 20120807
  Receipt Date: 20120726
  Transmission Date: 20120928
  Serious: Yes (Other)
  Sender: FDA-Public Use
  Company Number: BR-AMGEN-BRASP2012041582

PATIENT
  Age: 75 Year
  Sex: Female

DRUGS (4)
  1. ACETAMINOPHEN [Concomitant]
     Indication: RHEUMATOID ARTHRITIS
  2. ETANERCEPT [Suspect]
     Indication: RHEUMATOID ARTHRITIS
     Dosage: 25 MG, Q2WK
     Dates: start: 20070901
  3. CELEBREX [Concomitant]
     Indication: RHEUMATOID ARTHRITIS
  4. DEFLAZACORT [Concomitant]
     Indication: RHEUMATOID ARTHRITIS

REACTIONS (2)
  - HEPATIC NEOPLASM [None]
  - METASTASES TO SPINE [None]
